FAERS Safety Report 23264390 (Version 6)
Quarter: 2025Q4

REPORT INFORMATION
  Report Type: Report from Study
  Country: EU (occurrence: EU)
  Receive Date: 20231205
  Receipt Date: 20251216
  Transmission Date: 20260118
  Serious: Yes (Hospitalization)
  Sender: ABBVIE
  Company Number: None

PATIENT
  Age: 53 Year
  Sex: Male

DRUGS (25)
  1. PREDNISOLONE [Suspect]
     Active Substance: PREDNISOLONE
     Indication: Product used for unknown indication
     Dosage: DOSE DESC: GIVEN BEFORE OCREVUS INFUSION, FORM: UNKNOWN
     Route: 065
  2. OCREVUS [Suspect]
     Active Substance: OCRELIZUMAB
     Indication: Secondary progressive multiple sclerosis
     Dosage: DAILY DOSE: 600 MG
     Route: 042
     Dates: start: 20210520
  3. OCREVUS [Suspect]
     Active Substance: OCRELIZUMAB
     Indication: Secondary progressive multiple sclerosis
     Route: 042
     Dates: start: 20200917
  4. OCREVUS [Suspect]
     Active Substance: OCRELIZUMAB
     Indication: Secondary progressive multiple sclerosis
     Dosage: DAILY DOSE: 600 MG/LAST ADMIN DATE: 2020?6TH INFUSION
     Route: 042
     Dates: start: 20200309
  5. OCREVUS [Suspect]
     Active Substance: OCRELIZUMAB
     Indication: Secondary progressive multiple sclerosis
     Dosage: 5TH INFUSION
     Route: 042
     Dates: start: 20190918
  6. OCREVUS [Suspect]
     Active Substance: OCRELIZUMAB
     Indication: Secondary progressive multiple sclerosis
     Dosage: 4TH INFUSION/LAST ADMIN DATE : 2019
     Route: 042
     Dates: start: 20190327
  7. OCREVUS [Suspect]
     Active Substance: OCRELIZUMAB
     Indication: Secondary progressive multiple sclerosis
     Dosage: 3RD INFUSION
     Route: 042
     Dates: start: 20181010
  8. OCREVUS [Suspect]
     Active Substance: OCRELIZUMAB
     Indication: Secondary progressive multiple sclerosis
     Dosage: LAST ADMIN DATE: 2018
     Route: 042
     Dates: start: 20180321
  9. CORTISONE [Suspect]
     Active Substance: CORTISONE
     Indication: Product used for unknown indication
     Route: 065
  10. CORTISONE [Suspect]
     Active Substance: CORTISONE
     Indication: Product used for unknown indication
     Route: 065
  11. METFORMIN [Concomitant]
     Active Substance: METFORMIN HYDROCHLORIDE
     Indication: Product used for unknown indication
     Dosage: FREQUENCY: 0.5 MG
  12. JARDIANCE [Concomitant]
     Active Substance: EMPAGLIFLOZIN
     Indication: Product used for unknown indication
  13. ASPIRIN [Concomitant]
     Active Substance: ASPIRIN
     Indication: Product used for unknown indication
  14. METAMIZOLE [Concomitant]
     Active Substance: METAMIZOLE
     Indication: Product used for unknown indication
     Dosage: TIME INTERVAL: 1 AS NECESSARY
  15. CITALOPRAM [Concomitant]
     Active Substance: CITALOPRAM
     Indication: Product used for unknown indication
  16. DICLOFENAC [Concomitant]
     Active Substance: DICLOFENAC
     Indication: Product used for unknown indication
     Dosage: AS REQUIRED
  17. DICLOFENAC [Concomitant]
     Active Substance: DICLOFENAC
     Indication: Product used for unknown indication
     Dosage: TIME INTERVAL: AS NECESSARY: AS REQUIRED
  18. VALSARTAN [Concomitant]
     Active Substance: VALSARTAN
     Indication: Product used for unknown indication
     Dosage: 80/12.5 UNIT NOT REPORTED, 160/25 (0.5-0-0)
  19. NABIXIMOLS [Concomitant]
     Active Substance: NABIXIMOLS
     Indication: Product used for unknown indication
     Dosage: AS REQUIRED
  20. NABIXIMOLS [Concomitant]
     Active Substance: NABIXIMOLS
     Indication: Product used for unknown indication
     Dosage: TIME INTERVAL: AS NECESSARY
  21. BISOPROLOL [Concomitant]
     Active Substance: BISOPROLOL
     Indication: Product used for unknown indication
     Dosage: DAILY DOSE: 2.5 MG
  22. BISOPROLOL [Concomitant]
     Active Substance: BISOPROLOL
     Indication: Product used for unknown indication
     Dosage: FREQUENCY TEXT:1
  23. MOUNJARO [Concomitant]
     Active Substance: TIRZEPATIDE
     Indication: Product used for unknown indication
  24. EZEHRON DUO [Concomitant]
     Indication: Product used for unknown indication
  25. CANDESARTAN [Concomitant]
     Active Substance: CANDESARTAN
     Indication: Product used for unknown indication

REACTIONS (17)
  - Multiple sclerosis relapse [Recovered/Resolved]
  - Gastritis [Recovered/Resolved]
  - Pain in extremity [Recovered/Resolved]
  - Loose tooth [Not Recovered/Not Resolved]
  - Blood glucose increased [Recovered/Resolved]
  - Epistaxis [Recovered/Resolved]
  - Nasopharyngitis [Recovered/Resolved]
  - Fatigue [Recovered/Resolved]
  - Muscle spasticity [Recovered/Resolved]
  - Diarrhoea [Recovered/Resolved]
  - Hypoaesthesia [Not Recovered/Not Resolved]
  - Fatigue [Recovered/Resolved]
  - Drug ineffective [Unknown]
  - Off label use [Unknown]
  - COVID-19 [Recovered/Resolved]
  - Blood glucose increased [Recovered/Resolved]
  - Bone loss [Not Recovered/Not Resolved]

NARRATIVE: CASE EVENT DATE: 20180321
